FAERS Safety Report 7243924-2 (Version None)
Quarter: 2011Q1

REPORT INFORMATION
  Report Type: 
  Country: None (occurrence: None)
  Receive Date: 20110125
  Receipt Date: 20110112
  Transmission Date: 20110831
  Serious: Yes (Hospitalization)
  Sender: FDA-Public Use
  Company Number: B0690709A

PATIENT
  Age: 8 Year
  Sex: Female

DRUGS (1)
  1. ITRACONAZOLE [Suspect]
     Route: 065

REACTIONS (7)
  - SKIN INFECTION [None]
  - BODY TEMPERATURE INCREASED [None]
  - DERMATOPHYTOSIS [None]
  - RASH [None]
  - ERYTHEMA NODOSUM [None]
  - LYMPHADENOPATHY [None]
  - ERYTHEMA [None]
